FAERS Safety Report 6753855-X (Version None)
Quarter: 2010Q2

REPORT INFORMATION
  Report Type: 
  Country: None (occurrence: None)
  Receive Date: 20100603
  Receipt Date: 20100520
  Transmission Date: 20101027
  Serious: Yes (Life-Threatening, Hospitalization)
  Sender: FDA-Public Use
  Company Number: GB-ELI_LILLY_AND_COMPANY-GB201005005272

PATIENT
  Age: 45 Year
  Sex: Female

DRUGS (6)
  1. OLANZAPINE [Suspect]
     Indication: PSYCHOTIC DISORDER
     Dosage: 10 MG, UNK
     Route: 048
     Dates: start: 20100317, end: 20100321
  2. HALOPERIDOL [Concomitant]
     Indication: PSYCHOTIC DISORDER
     Dosage: 5 MG, UNK
     Route: 048
     Dates: start: 20100316, end: 20100317
  3. HALOPERIDOL [Concomitant]
     Dosage: 5 MG, 2/D
     Route: 030
     Dates: start: 20100317, end: 20100317
  4. CITALOPRAM [Concomitant]
  5. LORAZEPAM [Concomitant]
  6. QUETIAPINE [Concomitant]

REACTIONS (6)
  - BLOOD CREATININE INCREASED [None]
  - INFECTION [None]
  - LABILE BLOOD PRESSURE [None]
  - NEUROLEPTIC MALIGNANT SYNDROME [None]
  - PYREXIA [None]
  - STRESS [None]
